FAERS Safety Report 7305745-1 (Version None)
Quarter: 2011Q1

REPORT INFORMATION
  Report Type: 
  Country: None (occurrence: None)
  Receive Date: 20110222
  Receipt Date: 20110209
  Transmission Date: 20110831
  Serious: Yes (Hospitalization)
  Sender: FDA-Public Use
  Company Number: B0683654A

PATIENT
  Sex: Male

DRUGS (5)
  1. KALETRA [Suspect]
     Route: 065
  2. EPZICOM [Suspect]
     Indication: HIV INFECTION
     Dosage: 1IUAX PER DAY
     Route: 048
     Dates: start: 20100816, end: 20101122
  3. FOSCAVIR [Concomitant]
  4. FLUCONAZOLE [Concomitant]
  5. DOMPERIDONE [Concomitant]

REACTIONS (1)
  - PANCYTOPENIA [None]
